APPROVED DRUG PRODUCT: DOCETAXEL
Active Ingredient: DOCETAXEL
Strength: 200MG/10ML (20MG/ML)
Dosage Form/Route: INJECTABLE;INJECTION
Application: A206177 | Product #003
Applicant: DFB ONCOLOGY LTD
Approved: Jan 20, 2017 | RLD: No | RS: No | Type: DISCN